FAERS Safety Report 9468431 (Version 3)
Quarter: 2013Q3

REPORT INFORMATION
  Report Type: Spontaneous
  Country: US (occurrence: US)
  Receive Date: 20130821
  Receipt Date: 20130924
  Transmission Date: 20140515
  Serious: Yes (Other)
  Sender: FDA-Public Use
  Company Number: US-PFIZER INC-2013238201

PATIENT
  Age: 70 Year
  Sex: Female
  Weight: 77.1 kg

DRUGS (2)
  1. LATANOPROST [Suspect]
     Indication: INTRAOCULAR PRESSURE INCREASED
     Dosage: 1 GTT EACH EYE, 1X/DAY
     Route: 047
     Dates: start: 2012
  2. LATANOPROST [Suspect]
     Indication: OPEN ANGLE GLAUCOMA

REACTIONS (3)
  - Poor quality drug administered [Unknown]
  - Intraocular pressure increased [Unknown]
  - Weight decreased [Unknown]
